FAERS Safety Report 7493213-6 (Version None)
Quarter: 2011Q2

REPORT INFORMATION
  Report Type: 
  Country: None (occurrence: None)
  Receive Date: 20110520
  Receipt Date: 20110506
  Transmission Date: 20111010
  Serious: Yes (Death)
  Sender: FDA-Public Use
  Company Number: US-JNJFOC-20110503920

PATIENT
  Age: 66 Year
  Sex: Male
  Weight: 78.4 kg

DRUGS (5)
  1. REMICADE [Suspect]
     Dosage: 400 MG X 2 DOSES
     Route: 042
     Dates: start: 20110407
  2. REMICADE [Suspect]
     Indication: RHEUMATOID ARTHRITIS
     Route: 042
  3. METHOTREXATE [Concomitant]
  4. REMICADE [Suspect]
     Route: 042
     Dates: start: 20110422
  5. ORENCIA [Concomitant]
     Indication: RHEUMATOID ARTHRITIS

REACTIONS (6)
  - DEATH [None]
  - VOMITING [None]
  - BACK PAIN [None]
  - MUSCLE SPASMS [None]
  - INFUSION RELATED REACTION [None]
  - CHILLS [None]
